FAERS Safety Report 5008517-6 (Version None)
Quarter: 2006Q2

REPORT INFORMATION
  Report Type: 
  Country: None (occurrence: None)
  Receive Date: 20060518
  Receipt Date: 20060510
  Transmission Date: 20061013
  Serious: Yes (Life-Threatening, Hospitalization)
  Sender: FDA-Public Use
  Company Number: 224985

PATIENT
  Age: 76 Year
  Sex: Female

DRUGS (10)
  1. ACTIVASE [Suspect]
     Indication: ISCHAEMIA
     Dosage: 70 MG, INTRAVENOUS
     Route: 042
     Dates: start: 20060425, end: 20060425
  2. ACE INHIBITOR (ANGIOTENSIN-CONVERTING ENZYME INHIBITORS) [Concomitant]
  3. OXACEPROL (OXACEPROL) [Concomitant]
  4. RAMIPRIL [Concomitant]
  5. PLAVIX [Concomitant]
  6. BISOPROLOL FUMARATE [Concomitant]
  7. ALLOPURINOL [Concomitant]
  8. ESTRIOL (ESTRIOL) [Concomitant]
  9. CHININSULFAT (QUININE SULFATE) [Concomitant]
  10. DICLOFENAC SODIUM [Concomitant]

REACTIONS (2)
  - ANAPHYLACTIC SHOCK [None]
  - PROCEDURAL COMPLICATION [None]
